FAERS Safety Report 6158991-7 (Version None)
Quarter: 2009Q2

REPORT INFORMATION
  Report Type: 
  Country: None (occurrence: None)
  Receive Date: 20090417
  Receipt Date: 20090409
  Transmission Date: 20091009
  Serious: Yes (Other)
  Sender: FDA-Public Use
  Company Number: IT-JNJFOC-20090402849

PATIENT
  Age: 54 Year
  Sex: Male

DRUGS (3)
  1. TOPAMAX [Suspect]
     Dosage: TOPIRAMATE WAS TAPERED OVER ONE MONTH
     Route: 048
  2. TOPAMAX [Suspect]
     Route: 048
  3. TOPAMAX [Suspect]
     Indication: EPILEPSY
     Route: 048

REACTIONS (1)
  - ERECTILE DYSFUNCTION [None]
